FAERS Safety Report 6302394-9 (Version None)
Quarter: 2009Q3

REPORT INFORMATION
  Report Type: 
  Country: None (occurrence: None)
  Receive Date: 20090810
  Receipt Date: 20090806
  Transmission Date: 20100115
  Serious: Yes (Life-Threatening, Other)
  Sender: FDA-Public Use
  Company Number: PHHY2009RS32915

PATIENT
  Sex: Male

DRUGS (2)
  1. CARBAMAZEPINE [Suspect]
     Dosage: UNK
  2. MIDAZOLAM HCL [Suspect]

REACTIONS (3)
  - COMA [None]
  - DRUG TOXICITY [None]
  - INTENTIONAL DRUG MISUSE [None]
